FAERS Safety Report 9269820 (Version 1)
Quarter: 2013Q2

REPORT INFORMATION
  Report Type: Report from Study
  Country: CA (occurrence: CA)
  Receive Date: 20130503
  Receipt Date: 20130503
  Transmission Date: 20140414
  Serious: Yes (Other)
  Sender: FDA-Public Use
  Company Number: CA-JNJFOC-20130404818

PATIENT
  Age: 40 Year
  Sex: Male
  Weight: 74.5 kg

DRUGS (4)
  1. REMICADE [Suspect]
     Indication: ANKYLOSING SPONDYLITIS
     Route: 042
     Dates: start: 20060324
  2. TYLENOL 3 [Concomitant]
     Route: 065
  3. PANTOLOC [Concomitant]
     Route: 065
  4. AMITRIPTYLINE [Concomitant]
     Route: 065

REACTIONS (3)
  - Cellulitis [Unknown]
  - Cystitis [Recovered/Resolved]
  - Nephrolithiasis [Recovered/Resolved]
